FAERS Safety Report 6675302-9 (Version None)
Quarter: 2010Q2

REPORT INFORMATION
  Report Type: 
  Country: None (occurrence: None)
  Receive Date: 20100409
  Receipt Date: 20100120
  Transmission Date: 20101027
  Serious: No
  Sender: FDA-Public Use
  Company Number: A0840526A

PATIENT
  Age: 50 Year
  Sex: Female

DRUGS (3)
  1. TYKERB [Suspect]
     Indication: BREAST CANCER
     Dosage: 5TAB PER DAY
     Route: 048
     Dates: start: 20100114
  2. VICODIN [Concomitant]
  3. CHEMOTHERAPY [Concomitant]
     Dates: start: 20100114

REACTIONS (2)
  - FATIGUE [None]
  - NAUSEA [None]
